FAERS Safety Report 24218024 (Version 1)
Quarter: 2024Q3

REPORT INFORMATION
  Report Type: Spontaneous
  Country: US (occurrence: US)
  Receive Date: 20240816
  Receipt Date: 20240816
  Transmission Date: 20241017
  Serious: Yes (Other)
  Sender: REGENERON
  Company Number: US-REGENERON PHARMACEUTICALS, INC.-2024-110668

PATIENT
  Sex: Male

DRUGS (1)
  1. PRALUENT [Suspect]
     Active Substance: ALIROCUMAB
     Indication: Hypercholesterolaemia
     Dosage: 150 MG, Q2W
     Route: 058

REACTIONS (10)
  - Lyme disease [Unknown]
  - Angina pectoris [Unknown]
  - Microvascular coronary artery disease [Unknown]
  - Musculoskeletal pain [Unknown]
  - Back pain [Unknown]
  - Arterial occlusive disease [Unknown]
  - Fibromyalgia [Unknown]
  - General physical health deterioration [Unknown]
  - Muscle spasms [Unknown]
  - Myalgia [Unknown]
